FAERS Safety Report 8359429-1 (Version None)
Quarter: 2012Q2

REPORT INFORMATION
  Report Type: 
  Country: None (occurrence: None)
  Receive Date: 20120515
  Receipt Date: 20120507
  Transmission Date: 20120825
  Serious: Yes (Other)
  Sender: FDA-Public Use
  Company Number: DE-UCBSA-051275

PATIENT
  Age: 55 Year
  Sex: Female
  Weight: 100 kg

DRUGS (3)
  1. CARBAMAZEPINE [Suspect]
     Dosage: TOTAL DOSE:2400 MG (WITHIN 12 HOURS)
     Route: 048
  2. PRIMIDONE [Suspect]
     Dosage: TOTAL DOSE:1250 MG; 250 (5 TABLETS WITHIN 12 HOURS)
     Route: 048
  3. VIMPAT [Suspect]
     Dosage: TOTAL DOSE:800MG;200 (4 TABLETS WITHIN A PERIOD OF 12 HOURS)
     Route: 048

REACTIONS (1)
  - ACCIDENTAL OVERDOSE [None]
